FAERS Safety Report 12707366 (Version 2)
Quarter: 2016Q3

REPORT INFORMATION
  Report Type: Spontaneous
  Country: PT (occurrence: PT)
  Receive Date: 20160901
  Receipt Date: 20160923
  Transmission Date: 20161109
  Serious: Yes (Death, Hospitalization)
  Sender: FDA-Public Use
  Company Number: PT-WEST-WARD PHARMACEUTICALS CORP.-PT-H14001-16-01722

PATIENT
  Sex: Male

DRUGS (1)
  1. CETAMINA HIKMA [Suspect]
     Active Substance: KETAMINE HYDROCHLORIDE
     Indication: ANAESTHESIA
     Route: 040
     Dates: start: 2016, end: 2016

REACTIONS (3)
  - Respiratory depression [Recovered/Resolved]
  - Muscle rigidity [Recovered/Resolved]
  - Sepsis [Fatal]

NARRATIVE: CASE EVENT DATE: 2016
